FAERS Safety Report 26184470 (Version 1)
Quarter: 2025Q4

REPORT INFORMATION
  Report Type: Spontaneous
  Country: US (occurrence: US)
  Receive Date: 20251222
  Receipt Date: 20251222
  Transmission Date: 20260118
  Serious: Yes (Hospitalization)
  Sender: MITEM PHARMA
  Company Number: US-MITEM PHARMA-202500056

PATIENT
  Age: 5 Year
  Sex: Female
  Weight: 13.30 kg

DRUGS (1)
  1. DEFEROXAMINE [Suspect]
     Active Substance: DEFEROXAMINE MESYLATE
     Indication: Iron overload
     Dosage: RECEIVED 80 0MG (60 MG/KG) OVER 1H INSTEAD OF OVER 12H

REACTIONS (2)
  - Accidental overdose [Unknown]
  - Incorrect product administration duration [Unknown]
